FAERS Safety Report 5193700-X (Version None)
Quarter: 2006Q4

REPORT INFORMATION
  Report Type: 
  Country: None (occurrence: None)
  Receive Date: 20061228
  Receipt Date: 20061218
  Transmission Date: 20070319
  Serious: Yes (Other)
  Sender: FDA-Public Use
  Company Number: US-JNJFOC-20060806650

PATIENT
  Sex: Male
  Weight: 127.46 kg

DRUGS (3)
  1. FENTANYL TRANSDERMAL SYSTEM [Suspect]
     Indication: BACK PAIN
     Route: 062
  2. QUININE SULFATE [Concomitant]
     Indication: MUSCLE SPASMS
     Route: 048
  3. MUSCLE RELAXER [Concomitant]
     Indication: MUSCLE SPASMS
     Route: 048

REACTIONS (4)
  - DIABETES MELLITUS [None]
  - HYPERHIDROSIS [None]
  - INAPPROPRIATE SCHEDULE OF DRUG ADMINISTRATION [None]
  - PHARMACEUTICAL PRODUCT COMPLAINT [None]
